FAERS Safety Report 8795795 (Version 1)
Quarter: 2012Q4

REPORT INFORMATION
  Report Type: 
  Country: US (occurrence: US)
  Receive Date: 20120919
  Receipt Date: 20120919
  Transmission Date: 20130627
  Serious: No
  Sender: FDA-Public Use
  Company Number: US-B.I. PHARMACEUTICALS,INC./RIDGEFIELD-2012-BP-22601BP

PATIENT
  Age: 80 Year
  Sex: Female
  Weight: 104 kg

DRUGS (14)
  1. SPIRIVA [Suspect]
     Indication: CHRONIC OBSTRUCTIVE PULMONARY DISEASE
     Dosage: 18 mcg
     Route: 055
     Dates: start: 2010
  2. SPIRIVA [Suspect]
     Route: 048
     Dates: start: 20120912, end: 20120912
  3. BUMETANIDE [Concomitant]
     Indication: CARDIAC DISORDER
     Dosage: 2 mg
     Route: 048
     Dates: start: 2008
  4. GLYBURIDE [Concomitant]
     Indication: DIABETES MELLITUS
     Dosage: 10 mg
     Route: 048
     Dates: start: 2008
  5. HYDROXYZINE [Concomitant]
     Indication: HYPERSENSITIVITY
     Dosage: 5 mg
     Route: 048
     Dates: start: 2008
  6. KLOR-CON [Concomitant]
     Indication: SUPPLEMENTATION THERAPY
     Dosage: 20 mg
     Route: 048
     Dates: start: 2008
  7. OMEPRAZOLE [Concomitant]
     Indication: GASTROOESOPHAGEAL REFLUX DISEASE
     Dosage: 20 mg
     Route: 048
     Dates: start: 2008
  8. PLAVIX [Concomitant]
     Indication: CARDIAC DISORDER
     Dosage: 75 mg
     Route: 048
     Dates: start: 2008
  9. PRAVASTATIN [Concomitant]
     Indication: BLOOD CHOLESTEROL INCREASED
     Dosage: 40 mg
     Route: 048
     Dates: start: 2008
  10. XOPENEX [Concomitant]
     Indication: CHRONIC OBSTRUCTIVE PULMONARY DISEASE
     Route: 055
     Dates: start: 2008
  11. DULERA [Concomitant]
     Indication: CHRONIC OBSTRUCTIVE PULMONARY DISEASE
     Dosage: 4 puf
     Route: 055
     Dates: start: 2008
  12. ESCITALOPRAM [Concomitant]
     Indication: DEPRESSION
     Dosage: 10 mg
     Route: 048
     Dates: start: 2008
  13. PRAMIPEXOLE [Concomitant]
     Indication: RESTLESS LEGS SYNDROME
     Dosage: 0.25 mg
     Route: 048
     Dates: start: 201204
  14. BABY ASPIRIN [Concomitant]
     Indication: PROPHYLAXIS
     Dosage: 81 mg
     Route: 048
     Dates: start: 1992

REACTIONS (1)
  - Incorrect route of drug administration [Recovered/Resolved]
